FAERS Safety Report 8363470-2 (Version None)
Quarter: 2012Q2

REPORT INFORMATION
  Report Type: 
  Country: None (occurrence: None)
  Receive Date: 20120516
  Receipt Date: 20120508
  Transmission Date: 20120825
  Serious: Yes (Hospitalization, Other)
  Sender: FDA-Public Use
  Company Number: JP-VERTEX PHARMACEUTICALS INC.-AE-2012-004092

PATIENT
  Age: 64 Year
  Sex: Female

DRUGS (9)
  1. REBETOL [Concomitant]
     Indication: HEPATITIS C
     Route: 048
     Dates: start: 20120131, end: 20120227
  2. REBETOL [Concomitant]
     Route: 048
     Dates: start: 20120321, end: 20120403
  3. REBETOL [Concomitant]
     Route: 048
     Dates: start: 20120404
  4. PEGINTERFERON ALFA-2A [Concomitant]
     Indication: HEPATITIS C
     Route: 058
     Dates: start: 20120131, end: 20120315
  5. TELAVIC (TELAPREVIR) [Suspect]
     Indication: HEPATITIS C
     Route: 048
     Dates: start: 20120131, end: 20120316
  6. CONIEL [Concomitant]
     Route: 048
  7. REBETOL [Concomitant]
     Route: 048
     Dates: start: 20120228, end: 20120317
  8. NITROL [Concomitant]
     Route: 048
  9. CELESTAMINE TAB [Concomitant]
     Route: 048
     Dates: start: 20120316

REACTIONS (3)
  - ANAEMIA [None]
  - RASH [None]
  - HAEMOLYTIC ANAEMIA [None]
